FAERS Safety Report 18016095 (Version 1)
Quarter: 2020Q3

REPORT INFORMATION
  Report Type: Report from Study
  Country: None (occurrence: LB)
  Receive Date: 20200713
  Receipt Date: 20200713
  Transmission Date: 20201103
  Serious: Yes (Disabling)
  Sender: FDA-Public Use
  Company Number: LB-ABBVIE-20K-093-3475959-00

PATIENT
  Age: 59 Year
  Sex: Male
  Weight: 80 kg

DRUGS (7)
  1. HUMIRA [Suspect]
     Active Substance: ADALIMUMAB
     Indication: ANKYLOSING SPONDYLITIS
     Route: 058
     Dates: start: 20200115, end: 202003
  2. SOLPADEINE (ACETAMINOPHEN\CODEINE) [Concomitant]
     Active Substance: ACETAMINOPHEN\CODEINE PHOSPHATE
     Indication: PRODUCT USED FOR UNKNOWN INDICATION
  3. AMLOR [Concomitant]
     Active Substance: AMLODIPINE BESYLATE
     Indication: PRODUCT USED FOR UNKNOWN INDICATION
  4. HUMIRA [Suspect]
     Active Substance: ADALIMUMAB
     Route: 058
     Dates: start: 20200521
  5. DIFEN B12 [Suspect]
     Active Substance: BETAMETHASONE SODIUM PHOSPHATE\DICLOFENAC POTASSIUM\HYDROXOCOBALAMIN
     Indication: INTERVERTEBRAL DISC DISORDER
     Route: 065
  6. DIFEN B12 [Suspect]
     Active Substance: BETAMETHASONE SODIUM PHOSPHATE\DICLOFENAC POTASSIUM\HYDROXOCOBALAMIN
     Indication: GAIT INABILITY
  7. LIVINORM [Concomitant]
     Indication: PRODUCT USED FOR UNKNOWN INDICATION
     Dates: start: 20191020

REACTIONS (4)
  - Gait inability [Recovered/Resolved]
  - Intervertebral disc disorder [Not Recovered/Not Resolved]
  - Diarrhoea [Recovered/Resolved]
  - Gastrointestinal infection [Not Recovered/Not Resolved]

NARRATIVE: CASE EVENT DATE: 202006
